FAERS Safety Report 20447202 (Version 1)
Quarter: 2022Q1

REPORT INFORMATION
  Report Type: Spontaneous
  Country: US (occurrence: US)
  Receive Date: 20220209
  Receipt Date: 20220209
  Transmission Date: 20220423
  Serious: No
  Sender: FDA-Public Use
  Company Number: ENDG21-03753

PATIENT
  Age: 71 Year
  Sex: Female

DRUGS (1)
  1. DILTIAZEM HYDROCHLORIDE [Suspect]
     Active Substance: DILTIAZEM HYDROCHLORIDE
     Indication: Angina pectoris
     Dosage: UNK UNKNOWN, UNKNOWN
     Route: 065
     Dates: start: 20200831, end: 20210329

REACTIONS (2)
  - Alopecia [Not Recovered/Not Resolved]
  - Product prescribing error [Recovered/Resolved]

NARRATIVE: CASE EVENT DATE: 20200831
